FAERS Safety Report 10905816 (Version 1)
Quarter: 2015Q1

REPORT INFORMATION
  Report Type: Report from Study
  Country: US (occurrence: US)
  Receive Date: 20150311
  Receipt Date: 20150311
  Transmission Date: 20150721
  Serious: Yes (Hospitalization)
  Sender: FDA-Public Use
  Company Number: US-SANOFI-AVENTIS-2013SA032771

PATIENT
  Age: 71 Year
  Sex: Female
  Weight: 66.67 kg

DRUGS (22)
  1. BLINDED THERAPY [Suspect]
     Active Substance: INVESTIGATIONAL PRODUCT
     Route: 048
     Dates: start: 20120112
  2. TRIAMTERENE. [Concomitant]
     Active Substance: TRIAMTERENE
  3. COQ [Concomitant]
  4. OCUVITE [Concomitant]
     Active Substance: VITAMINS
  5. PLAVIX [Suspect]
     Active Substance: CLOPIDOGREL BISULFATE
     Indication: ANTIPLATELET THERAPY
     Dosage: 75MG, 600 MG
     Route: 048
     Dates: start: 20101230, end: 20101230
  6. ASPIRIN. [Suspect]
     Active Substance: ASPIRIN
     Indication: ANTIPLATELET THERAPY
     Dates: start: 201010
  7. CRESTOR [Concomitant]
     Active Substance: ROSUVASTATIN CALCIUM
     Indication: BLOOD CHOLESTEROL
  8. PROVENTIL [Concomitant]
     Active Substance: ALBUTEROL
  9. PLAVIX [Suspect]
     Active Substance: CLOPIDOGREL BISULFATE
     Indication: ANTIPLATELET THERAPY
     Route: 048
     Dates: start: 20101230
  10. LIPITOR [Concomitant]
     Active Substance: ATORVASTATIN CALCIUM
  11. NEBIVOLOL [Concomitant]
     Active Substance: NEBIVOLOL
  12. ALL OTHER THERAPEUTIC PRODUCTS [Concomitant]
     Active Substance: UNSPECIFIED INGREDIENT
     Dates: start: 20101230
  13. LANTUS [Concomitant]
     Active Substance: INSULIN GLARGINE
  14. DOXEPIN [Concomitant]
     Active Substance: DOXEPIN
  15. FISH OIL [Concomitant]
     Active Substance: FISH OIL
  16. TRICOR [Concomitant]
     Active Substance: FENOFIBRATE
     Indication: BLOOD CHOLESTEROL
  17. IRON [Concomitant]
     Active Substance: IRON
  18. SORIATANE [Concomitant]
     Active Substance: ACITRETIN
  19. BENAZEPRIL HYDROCHLORIDE. [Concomitant]
     Active Substance: BENAZEPRIL HYDROCHLORIDE
     Indication: BLOOD PRESSURE
  20. LESCOL [Concomitant]
     Active Substance: FLUVASTATIN SODIUM
     Indication: BLOOD CHOLESTEROL
  21. NOVOLOG [Concomitant]
     Active Substance: INSULIN ASPART
  22. DRUG ELUTING STENT [Suspect]
     Active Substance: DEVICE

REACTIONS (1)
  - Coronary artery restenosis [Recovered/Resolved]

NARRATIVE: CASE EVENT DATE: 20120929
